FAERS Safety Report 17573304 (Version 3)
Quarter: 2020Q2

REPORT INFORMATION
  Report Type: Spontaneous
  Country: US (occurrence: US)
  Receive Date: 20200323
  Receipt Date: 20200406
  Transmission Date: 20200713
  Serious: Yes (Hospitalization)
  Sender: FDA-Public Use
  Company Number: US-KERYX BIOPHARMACEUTICALS INC.-2020US006396

PATIENT
  Age: 57 Year
  Sex: Male
  Weight: 99.8 kg

DRUGS (18)
  1. PANTOPRAZOLE [Concomitant]
     Active Substance: PANTOPRAZOLE
     Dosage: 40 MILLIGRAM (1 TABLET), QD
     Route: 048
  2. AURYXIA [Suspect]
     Active Substance: TETRAFERRIC TRICITRATE DECAHYDRATE
     Dosage: 2 GRAM (TABLETS), TID W/MEAL, 1 W/SNACK
     Route: 048
  3. VENOFER [Concomitant]
     Active Substance: IRON SUCROSE
     Dosage: 50 MILLIGRAM, 3 TIMES/WK (AT DIALYSIS, MONDAY, WEDNESDAY, AND FRIDAY)
     Route: 042
     Dates: start: 20151109, end: 20191101
  4. DOCUSATE SODIUM. [Concomitant]
     Active Substance: DOCUSATE SODIUM
     Dosage: 100 MILLIGRAM (1 CAPSULE), BID
     Route: 048
  5. FLUTICASONE. [Concomitant]
     Active Substance: FLUTICASONE
     Dosage: 1 PUFF, QD
     Route: 055
  6. ASPIRIN (E.C.) [Concomitant]
     Active Substance: ASPIRIN
     Dosage: 81 MILLIGRAM (1 TABLET), QD
     Route: 048
  7. AURYXIA [Suspect]
     Active Substance: TETRAFERRIC TRICITRATE DECAHYDRATE
     Indication: HYPERPHOSPHATAEMIA
     Dosage: 1 GRAM (TABLET), QD WITH SNACK
     Route: 048
  8. AURYXIA [Suspect]
     Active Substance: TETRAFERRIC TRICITRATE DECAHYDRATE
     Dosage: 3 GRAM (TABLETS), TID W/MEALS
     Route: 048
  9. ATORVASTATIN [Concomitant]
     Active Substance: ATORVASTATIN
     Dosage: 20 MILLIGRAM (1 TABLET), QD
     Route: 048
  10. PREGABALIN. [Concomitant]
     Active Substance: PREGABALIN
     Dosage: 50 MILLIGRAM (1 CAPSULE), BID
     Route: 048
  11. AURYXIA [Suspect]
     Active Substance: TETRAFERRIC TRICITRATE DECAHYDRATE
     Dosage: 2 GRAM, TID W/MEALS
     Route: 048
  12. AMIODARONE [Concomitant]
     Active Substance: AMIODARONE
     Dosage: 2 TAB BID X 1 WEEK THEN TAKEN 1 TAB DAILY
     Route: 048
  13. CARVEDILOL. [Concomitant]
     Active Substance: CARVEDILOL
     Dosage: 12.5 MILLIGRAM (1 TABLET) ON DIALYSIS DAYS, 25 MILLIGRAM (2 TABLETS) ON NON-DIALYSIS DAYS
     Route: 048
  14. TRAZODONE [Concomitant]
     Active Substance: TRAZODONE HYDROCHLORIDE
     Indication: INSOMNIA
     Dosage: 50 MILLIGRAM, PRN
     Route: 048
  15. VENTOLIN [Concomitant]
     Active Substance: ALBUTEROL SULFATE
     Indication: WHEEZING
     Dosage: 2 PUFFS, Q4H PRN
     Route: 055
  16. VENOFER [Concomitant]
     Active Substance: IRON SUCROSE
     Dosage: 100 MILLIGRAM, QWK
     Route: 042
     Dates: start: 20150703, end: 20200124
  17. EPOETIN BETA [Concomitant]
     Active Substance: ERYTHROPOIETIN
     Dosage: 225 MICROGRAM AS DIRECTED EVERY 14 DAYS (AT DIALYSIS)
     Route: 065
  18. RENVELA [Concomitant]
     Active Substance: SEVELAMER CARBONATE
     Dosage: 800 MILLIGRAM, TID WITH MEALS
     Route: 048

REACTIONS (4)
  - Iron overload [Unknown]
  - Hepatic cirrhosis [Unknown]
  - Hepatic siderosis [Unknown]
  - Right ventricular failure [Unknown]
